FAERS Safety Report 14101885 (Version 2)
Quarter: 2017Q4

REPORT INFORMATION
  Report Type: Spontaneous
  Country: CO (occurrence: CO)
  Receive Date: 20171018
  Receipt Date: 20171215
  Transmission Date: 20180321
  Serious: Yes (Hospitalization)
  Sender: FDA-Public Use
  Company Number: CO-ASTRAZENECA-2017SF05131

PATIENT
  Age: 40 Year
  Sex: Male

DRUGS (1)
  1. BRILINTA [Suspect]
     Active Substance: TICAGRELOR
     Dosage: 90.0MG UNKNOWN
     Route: 048
     Dates: start: 20170816, end: 20171009

REACTIONS (5)
  - Asthenia [Unknown]
  - Myocardial ischaemia [Unknown]
  - Bradycardia [Unknown]
  - Dyspnoea [Unknown]
  - Angina unstable [Unknown]
